FAERS Safety Report 16951390 (Version 1)
Quarter: 2019Q4

REPORT INFORMATION
  Report Type: Report from Study
  Country: KR (occurrence: KR)
  Receive Date: 20191023
  Receipt Date: 20191023
  Transmission Date: 20200122
  Serious: Yes (Other)
  Sender: FDA-Public Use
  Company Number: KR-INCYTE CORPORATION-2019IN010517

PATIENT

DRUGS (32)
  1. SIGMART [Concomitant]
     Active Substance: NICORANDIL
     Indication: CARDIAC FAILURE
     Dosage: 2 DF, QD
     Route: 048
     Dates: start: 20190828
  2. NORVASC [Concomitant]
     Active Substance: AMLODIPINE BESYLATE
     Indication: PRODUCT USED FOR UNKNOWN INDICATION
     Dosage: 1 DF, QD
     Route: 048
     Dates: start: 20190918
  3. NEXIUM [Concomitant]
     Active Substance: ESOMEPRAZOLE MAGNESIUM
     Indication: PROPHYLAXIS
     Dosage: 1 DF, QD
     Route: 042
     Dates: start: 20190916, end: 20190923
  4. GANATON [Concomitant]
     Active Substance: ITOPRIDE
     Indication: PRODUCT USED FOR UNKNOWN INDICATION
     Dosage: 2 DF, QD
     Route: 048
     Dates: start: 20190828, end: 20190925
  5. CONCOR [Concomitant]
     Active Substance: BISOPROLOL FUMARATE
     Indication: HYPERTENSION
     Dosage: 1 DF, QD
     Route: 048
     Dates: start: 20190828
  6. SMOFKABIVEN PERIPHERAL [Concomitant]
     Indication: PROPHYLAXIS
     Dosage: 1448 ML, QD
     Route: 042
     Dates: start: 20190916, end: 20190916
  7. LASIX [Concomitant]
     Active Substance: FUROSEMIDE
     Indication: PNEUMONIA
     Dosage: WD
     Route: 042
     Dates: start: 20190915, end: 20190920
  8. DISOLRIN [Concomitant]
     Indication: PNEUMONIA
     Dosage: 1 DF, QD
     Route: 065
     Dates: start: 20190916, end: 20190916
  9. EXVAN [Concomitant]
     Indication: HYPERTENSION
     Dosage: 1 DF, QD
     Route: 048
     Dates: start: 20161213, end: 20190916
  10. CODAEWON [Concomitant]
     Indication: PNEUMONIA
     Dosage: 20 ML, QD
     Route: 048
     Dates: start: 20190915, end: 20190921
  11. RINOEBASTEL [Concomitant]
     Indication: PNEUMONIA
     Dosage: 1 DF, QD
     Route: 048
     Dates: start: 20190917, end: 20190919
  12. CORDARONE [Concomitant]
     Active Substance: AMIODARONE HYDROCHLORIDE
     Indication: CARDIAC FAILURE
     Dosage: 2 DF, QD
     Route: 065
     Dates: start: 20190918, end: 20190918
  13. DIOVAN [Concomitant]
     Active Substance: VALSARTAN
     Indication: HYPERTENSION
     Dosage: 0.5 DF, QD
     Route: 048
     Dates: start: 20190828
  14. MUCOPECT [Concomitant]
     Indication: PNEUMONIA
     Dosage: 1 DF, QD
     Route: 048
     Dates: start: 20190915, end: 20190915
  15. AUGMENTIN [Concomitant]
     Active Substance: AMOXICILLIN\CLAVULANATE POTASSIUM
     Indication: SINUSITIS
     Dosage: 3 DF, QD
     Route: 048
     Dates: start: 20190925
  16. VIRAMID [Concomitant]
     Active Substance: RIBAVIRIN
     Indication: PNEUMONIA
     Dosage: 4.5 DF, QD
     Route: 048
     Dates: start: 20190918, end: 20190925
  17. JAKAVI [Suspect]
     Active Substance: RUXOLITINIB
     Indication: PRODUCT USED FOR UNKNOWN INDICATION
     Dosage: UNK
     Route: 065
  18. VENTOLIN NEBULAS [Concomitant]
     Active Substance: ALBUTEROL SULFATE
     Indication: PNEUMONIA
     Dosage: 1 DF, QD
     Route: 055
     Dates: start: 20190916, end: 20190919
  19. MAXIPIME [Concomitant]
     Active Substance: CEFEPIME HYDROCHLORIDE
     Indication: PNEUMONIA
     Dosage: 6 G, QD
     Route: 042
     Dates: start: 20190915, end: 20190917
  20. NEBILET [Concomitant]
     Active Substance: NEBIVOLOL
     Indication: PRODUCT USED FOR UNKNOWN INDICATION
     Dosage: 1 DF, QD
     Route: 048
     Dates: start: 20150714, end: 20190916
  21. SYNTHROID [Concomitant]
     Active Substance: LEVOTHYROXINE SODIUM
     Indication: HYPOTHYROIDISM
     Dosage: 1 DF, QD
     Route: 048
     Dates: start: 20180621
  22. DULCOLAX NOS [Concomitant]
     Active Substance: BISACODYL OR DOCUSATE SODIUM
     Indication: PROPHYLAXIS
     Dosage: 2 DF
     Route: 048
     Dates: start: 20190926, end: 20190926
  23. NEPHSOL [Concomitant]
     Indication: PROPHYLAXIS
     Dosage: 250 ML, QD
     Route: 042
     Dates: start: 20190920, end: 20190920
  24. ZOLMIN [Concomitant]
     Active Substance: TRIAZOLAM
     Indication: CARDIAC FAILURE
     Dosage: 1 DF, QD
     Route: 048
     Dates: start: 20091204, end: 20190916
  25. PHAZYME [Concomitant]
     Active Substance: DIMETHICONE 410
     Indication: PRODUCT USED FOR UNKNOWN INDICATION
     Dosage: 3 DF, QD
     Route: 048
     Dates: start: 20190913, end: 20190913
  26. ALLEGRA [Concomitant]
     Active Substance: FEXOFENADINE HYDROCHLORIDE
     Indication: SINUSITIS
     Dosage: 1 DF, QD
     Route: 048
     Dates: start: 20190925
  27. LANSTON [Concomitant]
     Active Substance: LANSOPRAZOLE
     Indication: PROPHYLAXIS
     Dosage: 1 DF, QD
     Route: 048
     Dates: start: 20190911, end: 20190916
  28. LEVOTENSION [Concomitant]
     Indication: HYPERTENSION
     Dosage: 1 DF, QD
     Route: 048
     Dates: start: 20190913, end: 20190913
  29. ZIPAN [Concomitant]
     Active Substance: PROMETHAZINE HYDROCHLORIDE
     Indication: PROPHYLAXIS
     Dosage: 1 DF, QD
     Route: 065
     Dates: start: 20190913, end: 20190913
  30. ELIQUIS [Concomitant]
     Active Substance: APIXABAN
     Indication: CARDIAC FAILURE
     Dosage: 2 DF, QD
     Route: 048
     Dates: start: 20190921
  31. PENIRAMIN [Concomitant]
     Indication: PROPHYLAXIS
     Dosage: 1 DF, QD
     Route: 042
     Dates: start: 20190916, end: 20190916
  32. COUGH SYRUP [Concomitant]
     Active Substance: DEXTROMETHORPHAN HYDROBROMIDE\GUAIFENESIN
     Indication: PNEUMONIA
     Dosage: 40 ML, QD
     Route: 048
     Dates: start: 20190914, end: 20190916

REACTIONS (5)
  - Hypertension [Unknown]
  - Parainfluenzae virus infection [Unknown]
  - Dizziness [Unknown]
  - Sinusitis [Not Recovered/Not Resolved]
  - Pneumonia [Unknown]

NARRATIVE: CASE EVENT DATE: 20190925
